FAERS Safety Report 14879768 (Version 2)
Quarter: 2019Q1

REPORT INFORMATION
  Report Type: Spontaneous
  Country: FR (occurrence: FR)
  Receive Date: 20180511
  Receipt Date: 20190315
  Transmission Date: 20190417
  Serious: Yes (Hospitalization, Other)
  Sender: FDA-Public Use
  Company Number: FR-TEVA-788167ROM

PATIENT
  Age: 17 Year
  Sex: Female

DRUGS (3)
  1. LEELOO [Suspect]
     Active Substance: ETHINYL ESTRADIOL\LEVONORGESTREL
     Indication: ORAL CONTRACEPTION
     Route: 065
     Dates: start: 201512, end: 201707
  2. CORTISONE [Concomitant]
     Active Substance: CORTISONE\HYDROCORTISONE
     Indication: MALAISE
     Dosage: DOSAGE UNKNOWN
     Route: 065
  3. DOXICYCLIN [Concomitant]
     Active Substance: DOXYCYCLINE
     Indication: MALAISE
     Dosage: DOSAGE UNKNOWN
     Route: 065

REACTIONS (3)
  - Pregnancy on oral contraceptive [Recovered/Resolved]
  - Maternal exposure during pregnancy [Unknown]
  - Abortion induced [Recovered/Resolved]

NARRATIVE: CASE EVENT DATE: 201705
